FAERS Safety Report 9931131 (Version 1)
Quarter: 2014Q1

REPORT INFORMATION
  Report Type: Spontaneous
  Country: GB (occurrence: GB)
  Receive Date: 20140227
  Receipt Date: 20140227
  Transmission Date: 20141002
  Serious: Yes (Other)
  Sender: FDA-Public Use
  Company Number: GB-009507513-1402GBR012856

PATIENT
  Age: 25 Year
  Sex: Female
  Weight: 96.61 kg

DRUGS (6)
  1. SINGULAIR [Suspect]
     Indication: RHINITIS ALLERGIC
     Dosage: 1 DF, QD
     Route: 048
     Dates: start: 20100901, end: 20110301
  2. SINGULAIR [Suspect]
     Indication: ASTHMA
  3. BECOTIDE [Concomitant]
  4. FLIXONASE [Concomitant]
  5. MOMETASONE FUROATE [Concomitant]
  6. VENTOLIN (ALBUTEROL SULFATE) [Concomitant]

REACTIONS (8)
  - Confusional state [Recovered/Resolved with Sequelae]
  - Intentional self-injury [Recovered/Resolved with Sequelae]
  - Social avoidant behaviour [Recovered/Resolved with Sequelae]
  - Depression [Recovered/Resolved with Sequelae]
  - Feeling abnormal [Recovered/Resolved with Sequelae]
  - Hallucination [Recovered/Resolved with Sequelae]
  - Nightmare [Recovered/Resolved with Sequelae]
  - Abdominal pain upper [Recovered/Resolved with Sequelae]
